FAERS Safety Report 17098642 (Version 1)
Quarter: 2019Q4

REPORT INFORMATION
  Report Type: Spontaneous
  Country: GB (occurrence: GB)
  Receive Date: 20191202
  Receipt Date: 20191202
  Transmission Date: 20200122
  Serious: Yes (Life-Threatening)
  Sender: FDA-Public Use
  Company Number: GB-PFIZER INC-2019515172

PATIENT
  Age: 19 Year
  Sex: Male

DRUGS (11)
  1. ZYVOX [Suspect]
     Active Substance: LINEZOLID
     Indication: LOWER RESPIRATORY TRACT INFECTION
     Dosage: 1200 MG, 1X/DAY (600MG/300ML INFUSION BAGS)
     Route: 041
  2. EPILIM [Concomitant]
     Active Substance: VALPROATE SODIUM
     Dosage: 800 MG, 1X/DAY
     Route: 050
  3. MOVICOL [Concomitant]
     Active Substance: POLYETHYLENE GLYCOL 3350\POTASSIUM CHLORIDE\SODIUM BICARBONATE\SODIUM CHLORIDE
     Dosage: 6.9 G, 1X/DAY AT NIGHT
  4. IBUPROFEN. [Concomitant]
     Active Substance: IBUPROFEN
     Dosage: 200 MG, 1X/DAY (100MG/5ML AT NIGHT)
     Route: 050
  5. NEXIUM [Concomitant]
     Active Substance: ESOMEPRAZOLE MAGNESIUM
     Dosage: 40 MG, 1X/DAY
     Route: 050
  6. PIPERACILLIN AND TAZOBACTAM [Concomitant]
     Active Substance: PIPERACILLIN SODIUM\TAZOBACTAM SODIUM
     Dosage: 13.5 G, 1X/DAY
     Route: 041
  7. BACLOFEN. [Concomitant]
     Active Substance: BACLOFEN
     Dosage: 45 MG, 1X/DAY
     Route: 050
  8. ACICLOVIR [Concomitant]
     Active Substance: ACYCLOVIR
     Dosage: 480 MG, 1X/DAY
     Route: 050
  9. HYOSCINE [Concomitant]
     Active Substance: SCOPOLAMINE
     Dosage: 1MG/72HOURS
     Route: 061
  10. PARACETAMOL [Concomitant]
     Active Substance: ACETAMINOPHEN
     Dosage: 500 MG, UNK
     Route: 050
  11. CLONAZEPAM. [Concomitant]
     Active Substance: CLONAZEPAM
     Dosage: 0.75 MG, 1X/DAY
     Route: 050

REACTIONS (2)
  - Off label use [Unknown]
  - Epilepsy [Recovered/Resolved]

NARRATIVE: CASE EVENT DATE: 20191030
